FAERS Safety Report 9631650 (Version 1)
Quarter: 2013Q4

REPORT INFORMATION
  Report Type: Report from Study
  Country: US (occurrence: US)
  Receive Date: 20131018
  Receipt Date: 20131018
  Transmission Date: 20140711
  Serious: Yes (Other)
  Sender: FDA-Public Use
  Company Number: US-ROCHE-1287585

PATIENT
  Sex: 0

DRUGS (2)
  1. BEVACIZUMAB [Suspect]
     Indication: BREAST CANCER METASTATIC
     Dosage: ONE CYCLE WAS CONSIDERED TO BE 28 DAYS
     Route: 042
  2. SORAFENIB [Suspect]
     Indication: BREAST CANCER METASTATIC
     Dosage: ONE CYCLE WAS CONSIDERED TO BE 28 DAYS. DOSE COULD BE INCREASED TO 200 MG TWICE DAILY IN PATIENTS WI
     Route: 048

REACTIONS (8)
  - Transaminases increased [Unknown]
  - Cardiotoxicity [Unknown]
  - Hypertension [Unknown]
  - Neuropathy peripheral [Unknown]
  - Pain [Unknown]
  - Rash [Unknown]
  - Wound complication [Unknown]
  - Hypersensitivity [Unknown]
